FAERS Safety Report 26018953 (Version 1)
Quarter: 2025Q4

REPORT INFORMATION
  Report Type: Other
  Country: GB (occurrence: GB)
  Receive Date: 20251110
  Receipt Date: 20251110
  Transmission Date: 20260118
  Serious: Yes (Disabling, Other)
  Sender: ZYDUS PHARM
  Company Number: None

PATIENT

DRUGS (11)
  1. RAMIPRIL [Suspect]
     Active Substance: RAMIPRIL
     Indication: Hypertension
     Dosage: 2.5 MILLIGRAM
     Route: 065
  2. BISOPROLOL [Suspect]
     Active Substance: BISOPROLOL
     Indication: Hypertension
     Dosage: 1.25 MILLIGRAM, QD
     Route: 065
  3. BISOPROLOL [Suspect]
     Active Substance: BISOPROLOL
     Indication: Angina pectoris
  4. BENDROFLUMETHIAZIDE [Suspect]
     Active Substance: BENDROFLUMETHIAZIDE
     Indication: Hypertension
     Dosage: 2.5 MILLIGRAM, QD
     Route: 065
  5. RANOLAZINE [Suspect]
     Active Substance: RANOLAZINE
     Indication: Angina pectoris
     Dosage: 750 MILLIGRAM, BID
     Route: 065
  6. LEVOTHYROXINE [Concomitant]
     Active Substance: LEVOTHYROXINE
     Indication: Hypothyroidism
     Dosage: UNK
     Route: 065
  7. FERROUS FUMARATE [Concomitant]
     Active Substance: FERROUS FUMARATE
     Indication: Blood iron decreased
     Dosage: UNK
     Route: 065
  8. NITROGLYCERIN [Concomitant]
     Active Substance: NITROGLYCERIN
     Indication: Angina pectoris
     Dosage: UNK
     Route: 065
  9. ASPIRIN [Concomitant]
     Active Substance: ASPIRIN
     Indication: Adverse drug reaction
     Dosage: UNK
     Route: 065
  10. ATORVASTATIN [Concomitant]
     Active Substance: ATORVASTATIN
     Indication: Blood cholesterol increased
     Dosage: UNK
     Route: 065
  11. LANSOPRAZOLE [Concomitant]
     Active Substance: LANSOPRAZOLE
     Indication: Adverse drug reaction
     Dosage: UNK
     Route: 065

REACTIONS (4)
  - Loss of consciousness [Recovered/Resolved]
  - Circulatory collapse [Recovered/Resolved]
  - Medication error [Unknown]
  - Hypotension [Recovered/Resolved]

NARRATIVE: CASE EVENT DATE: 20250710
